FAERS Safety Report 9527506 (Version 1)
Quarter: 2013Q1

REPORT INFORMATION
  Report Type: Spontaneous
  Country: US (occurrence: None)
  Receive Date: 20130314
  Receipt Date: 20130314
  Transmission Date: 20140127
  Serious: No
  Sender: FDA-Public Use
  Company Number: 1210USA001553

PATIENT
  Age: 59 Year
  Sex: Male
  Weight: 84.4 kg

DRUGS (3)
  1. VICTRELIS (BOCEPREVIR) CAPSULE, 200 MG [Suspect]
     Indication: HEPATITIS C
     Route: 048
     Dates: start: 20120709
  2. RIBAPAK (RIBAVIRIN) [Suspect]
     Dosage: 600/600 MG
  3. PEGASYS (PEGINTERFERON ALFA-2A) [Suspect]
     Indication: HEPATITIS C

REACTIONS (3)
  - Influenza like illness [None]
  - Fatigue [None]
  - Diarrhoea [None]
